FAERS Safety Report 11830000 (Version 1)
Quarter: 2015Q4

REPORT INFORMATION
  Report Type: Spontaneous
  Country: US (occurrence: US)
  Receive Date: 20151213
  Receipt Date: 20151213
  Transmission Date: 20160305
  Serious: Yes (Other)
  Sender: FDA-Public Use
  Company Number: US-RECKITT BENCKISER HEALTHCARE INT LIMITED-RB-09596-2015

PATIENT
  Age: 39 Year
  Sex: Male

DRUGS (4)
  1. MUCINEX [Suspect]
     Active Substance: GUAIFENESIN
     Indication: SINUSITIS
     Dosage: UNK
     Route: 065
     Dates: start: 2015, end: 2015
  2. MUCINEX [Suspect]
     Active Substance: GUAIFENESIN
     Dosage: UNK
     Route: 065
     Dates: start: 2015, end: 2015
  3. MUCINEX [Suspect]
     Active Substance: GUAIFENESIN
     Dosage: UNK, BID
     Route: 065
     Dates: start: 20151130
  4. MUCINEX [Suspect]
     Active Substance: GUAIFENESIN
     Dosage: 1 DF, QD
     Route: 065
     Dates: start: 20151129

REACTIONS (5)
  - Anaphylactic shock [Recovered/Resolved]
  - Rash [Recovering/Resolving]
  - Throat tightness [Recovered/Resolved]
  - Skin swelling [Unknown]
  - Paraesthesia [Recovered/Resolved]

NARRATIVE: CASE EVENT DATE: 2015
